FAERS Safety Report 4692406-0 (Version None)
Quarter: 2005Q2

REPORT INFORMATION
  Report Type: 
  Country: None (occurrence: None)
  Receive Date: 20050615
  Receipt Date: 20050530
  Transmission Date: 20051028
  Serious: Yes (Death)
  Sender: FDA-Public Use
  Company Number: EWC050544244

PATIENT
  Age: 40 Year
  Sex: Female
  Weight: 88 kg

DRUGS (5)
  1. GEMCITABINE HYDROCHLORIDE-IV (GEMCITABINE) [Suspect]
     Dosage: 1920 MG/2 OTHER
     Route: 050
     Dates: start: 20050513
  2. DOCETAXEL [Suspect]
     Dosage: 140 MG/1 OTHER
     Route: 050
     Dates: start: 20050513
  3. BONEFOS (CLODRONATE DISODIUM) [Concomitant]
  4. COXTRAL (NIMESULIDE) [Concomitant]
  5. CODEIN (CODEINE PHOSPHATE HEMIHYDRATE) [Concomitant]

REACTIONS (4)
  - ENTEROCOLITIS [None]
  - INFECTION [None]
  - MUCOSAL INFLAMMATION [None]
  - PANCYTOPENIA [None]
